FAERS Safety Report 6085834-2 (Version None)
Quarter: 2009Q1

REPORT INFORMATION
  Report Type: 
  Country: None (occurrence: None)
  Receive Date: 20090220
  Receipt Date: 20090218
  Transmission Date: 20090719
  Serious: Yes (Life-Threatening, Hospitalization, Other)
  Sender: FDA-Public Use
  Company Number: A0769568A

PATIENT
  Sex: Male

DRUGS (1)
  1. EPZICOM [Suspect]
     Indication: HIV INFECTION

REACTIONS (2)
  - CHEST PAIN [None]
  - MALAISE [None]
